FAERS Safety Report 5239771-3 (Version None)
Quarter: 2007Q1

REPORT INFORMATION
  Report Type: 
  Country: None (occurrence: None)
  Receive Date: 20070216
  Receipt Date: 20070206
  Transmission Date: 20070707
  Serious: Yes (Hospitalization, Other)
  Sender: FDA-Public Use
  Company Number: JP-ELI_LILLY_AND_COMPANY-JP200701005126

PATIENT
  Age: 24 Year
  Sex: Male

DRUGS (7)
  1. HUMULIN N [Suspect]
     Indication: DIABETES MELLITUS INSULIN-DEPENDENT
     Dosage: UNK, DAILY (1/D)
     Route: 058
     Dates: start: 19970101
  2. HUMULIN N [Suspect]
     Dosage: UNK, DAILY (1/D)
     Route: 058
     Dates: start: 19980101
  3. HUMULIN R [Suspect]
     Dosage: UNK, UNK
     Route: 058
     Dates: start: 19970101, end: 19980101
  4. MECOBALAMIN [Concomitant]
     Indication: HYPERGLYCAEMIA
     Dates: start: 19970719, end: 19970731
  5. CARBAMAZEPINE [Concomitant]
     Indication: HYPERGLYCAEMIA
     Dates: start: 19970719, end: 19970731
  6. GOSHAJINKIGAN [Concomitant]
     Indication: HYPERGLYCAEMIA
     Dosage: UNK, UNK
     Dates: start: 19970728, end: 19970731
  7. TROGLITAZONE [Concomitant]
     Indication: INSULIN RESISTANCE
     Dates: start: 19970728, end: 19970731

REACTIONS (3)
  - ANTI-INSULIN ANTIBODY POSITIVE [None]
  - DIABETES MELLITUS INADEQUATE CONTROL [None]
  - HEPATIC FUNCTION ABNORMAL [None]
